FAERS Safety Report 18507662 (Version 2)
Quarter: 2020Q4

REPORT INFORMATION
  Report Type: Spontaneous
  Country: GB (occurrence: GB)
  Receive Date: 20201116
  Receipt Date: 20201119
  Transmission Date: 20210114
  Serious: Yes (Hospitalization, Other)
  Sender: FDA-Public Use
  Company Number: GB-MYLANLABS-2020M1093878

PATIENT
  Age: 26 Year
  Sex: Female

DRUGS (7)
  1. MIRTAZAPINE. [Concomitant]
     Active Substance: MIRTAZAPINE
     Indication: DEPRESSION
     Dosage: 30 MILLIGRAM, QD
     Route: 048
  2. HALOPERIDOL. [Concomitant]
     Active Substance: HALOPERIDOL
     Indication: HALLUCINATION, AUDITORY
     Dosage: 5 MILLIGRAM, TID
     Route: 048
  3. CLOZARIL [Suspect]
     Active Substance: CLOZAPINE
     Indication: SCHIZOPHRENIA
     Dosage: 125 UNK, QD
     Route: 048
     Dates: start: 20171108
  4. CLOZARIL [Suspect]
     Active Substance: CLOZAPINE
     Indication: INTENTIONAL SELF-INJURY
     Dosage: UNK
     Route: 048
     Dates: start: 20201105, end: 202011
  5. ZOPICLONE [Concomitant]
     Active Substance: ZOPICLONE
     Indication: INSOMNIA
     Dosage: 7.5 MILLIGRAM, PRN
     Route: 048
  6. LITHIUM. [Concomitant]
     Active Substance: LITHIUM
     Indication: MOOD ALTERED
     Dosage: 600 MILLIGRAM, QD
     Route: 048
  7. PROMETHAZINE [Concomitant]
     Active Substance: PROMETHAZINE HYDROCHLORIDE
     Indication: ANXIETY
     Dosage: 25 MILLIGRAM, PRN
     Route: 048

REACTIONS (3)
  - Hospitalisation [Unknown]
  - Off label use [Unknown]
  - Overdose [Recovered/Resolved]

NARRATIVE: CASE EVENT DATE: 20171108
